FAERS Safety Report 9424771 (Version 2)
Quarter: 2013Q3

REPORT INFORMATION
  Report Type: Spontaneous
  Country: FR (occurrence: FR)
  Receive Date: 20130729
  Receipt Date: 20130805
  Transmission Date: 20140515
  Serious: Yes (Hospitalization)
  Sender: FDA-Public Use
  Company Number: FR-MERCK-1307FRA012600

PATIENT
  Age: 39 Year
  Sex: Female

DRUGS (3)
  1. GONADOTROPHINE CHORIONIQUE ENDO 5000 UI/1ML [Suspect]
     Dosage: 5000 IU, ONCE
     Route: 030
     Dates: start: 20110515, end: 20110515
  2. DECAPEPTYL (TRIPTORELIN ACETATE) [Suspect]
     Indication: OVULATION INDUCTION
     Dosage: 0.05 MG, QD
     Route: 058
     Dates: start: 20110504, end: 20110513
  3. GONAL-F [Suspect]
     Indication: OVULATION INDUCTION
     Dosage: 150 IU, QD
     Route: 058
     Dates: start: 20110504, end: 20110513

REACTIONS (2)
  - Ovarian hyperstimulation syndrome [Recovered/Resolved]
  - Abdominal cavity drainage [Recovered/Resolved]
